FAERS Safety Report 10214163 (Version 3)
Quarter: 2014Q2

REPORT INFORMATION
  Report Type: Spontaneous
  Country: US (occurrence: US)
  Receive Date: 20140603
  Receipt Date: 20140625
  Transmission Date: 20141212
  Serious: No
  Sender: FDA-Public Use
  Company Number: US-PFIZER INC-2014147459

PATIENT
  Age: 73 Year
  Sex: Male

DRUGS (11)
  1. PANTOPRAZOLE [Suspect]
     Dosage: UNK
     Route: 048
  2. DIOVAN [Suspect]
     Dosage: 1 DF, 1X/DAY
     Route: 048
  3. DIOVAN [Suspect]
     Dosage: 2 DF, 1X/DAY
     Route: 048
  4. DIOVAN [Suspect]
     Dosage: 1 DF, 1X/DAY
     Route: 048
  5. METFORMIN [Suspect]
     Dosage: UNK
     Route: 048
  6. AMLODIPINE [Concomitant]
     Dosage: UNK
  7. ASPIRIN [Concomitant]
     Dosage: UNK
  8. NOVOLIN [Concomitant]
     Dosage: UNK
  9. LANTUS [Concomitant]
     Dosage: UNK
  10. CENTRUM SILVER ADULTS 50+ [Concomitant]
     Dosage: UNK
  11. PROAIR [Concomitant]
     Dosage: UNK

REACTIONS (5)
  - Renal disorder [Unknown]
  - Liver disorder [Unknown]
  - Oral pain [Unknown]
  - Blood pressure inadequately controlled [Unknown]
  - Drug ineffective [Unknown]
